FAERS Safety Report 8294171 (Version 4)
Quarter: 2013Q3

REPORT INFORMATION
  Report Type: Spontaneous
  Country: US (occurrence: US)
  Receive Date: 20111216
  Receipt Date: 20130927
  Transmission Date: 20140515
  Serious: Yes (Death)
  Sender: FDA-Public Use
  Company Number: US-GLAXOSMITHKLINE-A0925213A

PATIENT
  Age: 80 Year
  Sex: Male
  Weight: 73.6 kg

DRUGS (8)
  1. PROMACTA [Suspect]
     Indication: IMMUNE THROMBOCYTOPENIC PURPURA
     Dosage: 50MG PER DAY
     Route: 048
     Dates: start: 20110325
  2. SIMVASTATIN [Concomitant]
  3. OMEPRAZOLE [Concomitant]
  4. DOXAZOSIN [Concomitant]
  5. PROVENTIL [Concomitant]
  6. FORADIL [Concomitant]
  7. AVODART [Concomitant]
  8. IRON [Concomitant]

REACTIONS (9)
  - Renal failure chronic [Unknown]
  - Local swelling [Recovered/Resolved]
  - Contusion [Recovered/Resolved]
  - Oedema peripheral [Recovered/Resolved]
  - Rash [Unknown]
  - Renal impairment [Not Recovered/Not Resolved]
  - Renal cyst [Not Recovered/Not Resolved]
  - Creatinine renal clearance increased [Not Recovered/Not Resolved]
  - Death [Fatal]
